FAERS Safety Report 7633782-6 (Version None)
Quarter: 2011Q3

REPORT INFORMATION
  Report Type: 
  Country: None (occurrence: None)
  Receive Date: 20110718
  Receipt Date: 20110702
  Transmission Date: 20111222
  Serious: Yes (Hospitalization, Other)
  Sender: FDA-Public Use
  Company Number: 2011AP001393

PATIENT
  Age: 79 Year
  Sex: Male

DRUGS (5)
  1. QUETIAPINE [Suspect]
     Indication: DELUSION
     Dosage: 12.5 MG, BID
  2. QUETIAPINE [Suspect]
     Indication: AGITATION
     Dosage: 12.5 MG, BID
  3. DONEPEZIL HYDROCHLORIDE [Suspect]
     Indication: DEMENTIA
     Dosage: 10 MG, QD
  4. MIRTAZAPINE [Suspect]
     Indication: SLEEP DISORDER
     Dosage: 30 MG, QD
  5. VENLAFAXINE [Suspect]
     Indication: PRODUCT USED FOR UNKNOWN INDICATION
     Dosage: 225 MG QD,75 MG, QD,

REACTIONS (2)
  - SEROTONIN SYNDROME [None]
  - BODY TEMPERATURE DECREASED [None]
